FAERS Safety Report 6936032-9 (Version None)
Quarter: 2010Q3

REPORT INFORMATION
  Report Type: 
  Country: None (occurrence: None)
  Receive Date: 20100816
  Receipt Date: 20090805
  Transmission Date: 20110219
  Serious: Yes (Other)
  Sender: FDA-Public Use
  Company Number: US-WYE-H10475009

PATIENT
  Age: 76 Year
  Sex: Female
  Weight: 66 kg

DRUGS (10)
  1. TYGACIL [Suspect]
     Indication: STAPHYLOCOCCAL INFECTION
     Dosage: 50 MG 1X PER 12 HR, INTRAVENOUS
     Route: 042
     Dates: start: 20090802, end: 20090805
  2. PREDNISONE [Concomitant]
  3. PROTONIX [Concomitant]
  4. LISINOPRIL [Concomitant]
  5. METOPROLOL SUCCINATE [Concomitant]
  6. LOVENOX [Concomitant]
  7. ASPIRIN [Concomitant]
  8. VANCOMYCIN [Concomitant]
  9. HYDROCHLOROTHIAZIDE [Concomitant]
  10. CALCIUM CARBONATE [Concomitant]

REACTIONS (1)
  - BLOOD UREA INCREASED [None]
